FAERS Safety Report 24870522 (Version 1)
Quarter: 2025Q1

REPORT INFORMATION
  Report Type: Report from Study
  Country: JP (occurrence: JP)
  Receive Date: 20250121
  Receipt Date: 20250121
  Transmission Date: 20250408
  Serious: Yes (Hospitalization)
  Sender: SANOFI AVENTIS
  Company Number: JP-SA-2025SA015333

PATIENT
  Age: 84 Year
  Sex: Male

DRUGS (1)
  1. SUTIMLIMAB [Suspect]
     Active Substance: SUTIMLIMAB
     Indication: Cold type haemolytic anaemia
     Route: 041

REACTIONS (2)
  - Anaemia [Recovered/Resolved]
  - Fungal infection [Recovered/Resolved]

NARRATIVE: CASE EVENT DATE: 20241201
